FAERS Safety Report 7772918-3 (Version None)
Quarter: 2011Q3

REPORT INFORMATION
  Report Type: 
  Country: None (occurrence: None)
  Receive Date: 20110922
  Receipt Date: 20110127
  Transmission Date: 20111222
  Serious: No
  Sender: FDA-Public Use
  Company Number: AL-ASTRAZENECA-2011SE04746

PATIENT
  Age: 37 Year
  Sex: Male
  Weight: 86.2 kg

DRUGS (1)
  1. SEROQUEL [Suspect]
     Indication: SLEEP DISORDER
     Route: 048
     Dates: start: 20060101, end: 20101201

REACTIONS (4)
  - SLEEP DISORDER [None]
  - INSOMNIA [None]
  - ABNORMAL DREAMS [None]
  - DRUG DOSE OMISSION [None]
